FAERS Safety Report 9724688 (Version 1)
Quarter: 2013Q4

REPORT INFORMATION
  Report Type: Spontaneous
  Country: JP (occurrence: JP)
  Receive Date: 20131202
  Receipt Date: 20131202
  Transmission Date: 20140711
  Serious: Yes (Other)
  Sender: FDA-Public Use
  Company Number: JP-SA-2013SA122736

PATIENT
  Age: 38 Year
  Sex: Female
  Weight: 46 kg

DRUGS (7)
  1. RENAGEL [Suspect]
     Indication: PRODUCT USED FOR UNKNOWN INDICATION
     Route: 048
  2. ALFAROL [Suspect]
     Indication: PRODUCT USED FOR UNKNOWN INDICATION
     Route: 048
  3. EPOETIN BETA [Suspect]
     Indication: PRODUCT USED FOR UNKNOWN INDICATION
     Route: 042
  4. OXAROL [Suspect]
     Indication: PRODUCT USED FOR UNKNOWN INDICATION
     Route: 042
  5. RITODRINE HYDROCHLORIDE [Concomitant]
     Route: 048
  6. ALL OTHER THERAPEUTIC PRODUCTS [Concomitant]
     Dosage: DOSE REGIMEN 1, 3/W ADMINISTERED IN THE CIRCUIT AFTER IT DIALYZES IT UNTIL WEEK 25 OF PREGNANCY
     Route: 042
  7. ALL OTHER THERAPEUTIC PRODUCTS [Concomitant]
     Dosage: DOSE REGIMEN 2, 1/W ADMINISTERED IN THE CIRCUIT AFTER IT DIALYZES IT UNTIL WEEK 29 OF PREGNANCY
     Route: 042

REACTIONS (7)
  - Cardiac failure congestive [Unknown]
  - Dyspnoea [Unknown]
  - Pulmonary oedema [Unknown]
  - Cardiomegaly [Unknown]
  - Cardiac failure [Unknown]
  - Premature labour [Unknown]
  - Pregnancy [Unknown]
